FAERS Safety Report 18498862 (Version 2)
Quarter: 2020Q4

REPORT INFORMATION
  Report Type: Spontaneous
  Country: US (occurrence: US)
  Receive Date: 20201112
  Receipt Date: 20201125
  Transmission Date: 20210114
  Serious: Yes (Death, Hospitalization)
  Sender: FDA-Public Use
  Company Number: US-TEVA-2020-US-1846406

PATIENT
  Age: 66 Year
  Sex: Female

DRUGS (2)
  1. NOREPINEPHRINE. [Suspect]
     Active Substance: NOREPINEPHRINE
     Indication: VASOPRESSIVE THERAPY
     Dosage: VASOPRESSOR SUPPORT WITH NOREPINEPHRINE INFUSION TITRATED UP TO 10 MCG PER MINUTE
     Route: 065
  2. NOREPINEPHRINE. [Suspect]
     Active Substance: NOREPINEPHRINE
     Dosage: HER INFUSION PUMP WAS INCORRECTLY CONFIGURED TO SUPPLY A RATE OF 70 MCG PER MINUTE OF NOREPINEPHRINE
     Route: 065

REACTIONS (7)
  - Arteriospasm coronary [Fatal]
  - Wrong dose [Fatal]
  - Accidental overdose [Fatal]
  - Hypotension [Fatal]
  - Ventricular arrhythmia [Fatal]
  - Stress cardiomyopathy [Fatal]
  - Device infusion issue [Fatal]
